FAERS Safety Report 18472220 (Version 3)
Quarter: 2021Q2

REPORT INFORMATION
  Report Type: Spontaneous
  Country: ES (occurrence: ES)
  Receive Date: 20201106
  Receipt Date: 20210414
  Transmission Date: 20210717
  Serious: Yes (Hospitalization)
  Sender: FDA-Public Use
  Company Number: ES-AUROBINDO-AUR-APL-2020-054510

PATIENT
  Age: 76 Year
  Sex: Male

DRUGS (1)
  1. ERTAPENEM POWDER FOR CONCENTRATE FOR SOLUTION FOR INFUSION [Suspect]
     Active Substance: ERTAPENEM
     Indication: PYELONEPHRITIS ACUTE
     Dosage: 1 GRAM, ONCE A DAY,1 VIAL
     Route: 042
     Dates: start: 20171023, end: 20171107

REACTIONS (3)
  - Product use in unapproved indication [Unknown]
  - Confusional state [Recovered/Resolved]
  - Fall [Recovered/Resolved]

NARRATIVE: CASE EVENT DATE: 20171025
